FAERS Safety Report 6524558-1 (Version None)
Quarter: 2010Q1

REPORT INFORMATION
  Report Type: 
  Country: None (occurrence: None)
  Receive Date: 20100104
  Receipt Date: 20091228
  Transmission Date: 20100710
  Serious: Yes (Hospitalization)
  Sender: FDA-Public Use
  Company Number: FR-ROCHE-676666

PATIENT
  Sex: Male

DRUGS (3)
  1. RIVOTRIL [Suspect]
     Indication: DRUG USE FOR UNKNOWN INDICATION
     Dosage: DOSE: 3 BOXES OF 40 TABLETS
     Route: 048
     Dates: start: 20091105, end: 20091105
  2. SOLIAN [Concomitant]
     Route: 048
  3. ALCOHOL [Suspect]
     Indication: DRUG USE FOR UNKNOWN INDICATION
     Dosage: DRANK ONE PACK OF BEER
     Route: 065

REACTIONS (2)
  - POISONING DELIBERATE [None]
  - PSYCHOMOTOR SKILLS IMPAIRED [None]
